FAERS Safety Report 15107422 (Version 4)
Quarter: 2019Q1

REPORT INFORMATION
  Report Type: Spontaneous
  Country: None (occurrence: US)
  Receive Date: 20180704
  Receipt Date: 20190201
  Transmission Date: 20190417
  Serious: Yes (Other)
  Sender: FDA-Public Use
  Company Number: US-DUCHESNAY INC.-2051432

PATIENT
  Age: 74 Year
  Sex: Female

DRUGS (5)
  1. ALEVE [Concomitant]
     Active Substance: NAPROXEN SODIUM
  2. PROAIR HFA [Concomitant]
     Active Substance: ALBUTEROL SULFATE
  3. MONTELUKAST [Concomitant]
     Active Substance: MONTELUKAST SODIUM
  4. ADVAIR HFA [Concomitant]
     Active Substance: FLUTICASONE PROPIONATE\SALMETEROL XINAFOATE
  5. OSPHENA [Suspect]
     Active Substance: OSPEMIFENE
     Indication: PRODUCT USED FOR UNKNOWN INDICATION
     Route: 048
     Dates: start: 20160108, end: 20180420

REACTIONS (1)
  - Postmenopausal haemorrhage [Recovered/Resolved]

NARRATIVE: CASE EVENT DATE: 20180425
